FAERS Safety Report 14302540 (Version 1)
Quarter: 2017Q4

REPORT INFORMATION
  Report Type: Spontaneous
  Country: US (occurrence: US)
  Receive Date: 20171219
  Receipt Date: 20171219
  Transmission Date: 20180321
  Serious: Yes (Death, Life-Threatening, Hospitalization, Disabling)
  Sender: FDA-Public Use
  Company Number: None

PATIENT
  Age: 79 Year
  Sex: Female
  Weight: 54 kg

DRUGS (1)
  1. AMIODORONE [Suspect]
     Active Substance: AMIODARONE
     Indication: ATRIAL FIBRILLATION
     Route: 048

REACTIONS (9)
  - Oedema [None]
  - Blindness [None]
  - Dysgeusia [None]
  - Asthenia [None]
  - Decreased appetite [None]
  - Dyspnoea [None]
  - Cardiac failure [None]
  - Limb discomfort [None]
  - Thyroid disorder [None]
